FAERS Safety Report 4372902-6 (Version None)
Quarter: 2004Q2

REPORT INFORMATION
  Report Type: 
  Country: None (occurrence: None)
  Receive Date: 20040603
  Receipt Date: 20030213
  Transmission Date: 20050107
  Serious: Yes (Hospitalization)
  Sender: FDA-Public Use
  Company Number: F01200300138

PATIENT
  Age: 64 Year
  Sex: Male

DRUGS (11)
  1. ALFUZOSIN - TABLET PR - 10 MG [Suspect]
     Indication: BENIGN PROSTATIC HYPERPLASIA
     Dosage: 10 MG OD
     Route: 048
     Dates: start: 20020710, end: 20021005
  2. ZOCOR [Concomitant]
  3. ACETYLSALICYLIC ACID SRT [Concomitant]
  4. PLAVIX [Concomitant]
  5. ALLOPURINOL [Concomitant]
  6. ZAFIRLUKAST [Concomitant]
  7. CELECOXIB [Concomitant]
  8. METOPROLOL TARTRATE [Concomitant]
  9. VITALUX (MULTIVITAMINS) [Concomitant]
  10. CANDESARTAN [Concomitant]
  11. NORVASC [Concomitant]

REACTIONS (2)
  - ANGINA UNSTABLE [None]
  - MYOCARDIAL INFARCTION [None]
